FAERS Safety Report 10131724 (Version 1)
Quarter: 2014Q2

REPORT INFORMATION
  Report Type: Spontaneous
  Country: US (occurrence: US)
  Receive Date: 20140428
  Receipt Date: 20140428
  Transmission Date: 20141212
  Serious: No
  Sender: FDA-Public Use
  Company Number: US-GLAXOSMITHKLINE-A1024921A

PATIENT
  Age: 68 Year
  Sex: Male

DRUGS (4)
  1. ONDANSETRON [Suspect]
     Indication: PROPHYLAXIS OF NAUSEA AND VOMITING
     Dosage: 4MG PER DAY
     Route: 048
     Dates: start: 20130301
  2. VOTRIENT [Suspect]
     Indication: LEIOMYOSARCOMA
     Dosage: 800MG PER DAY
     Route: 048
     Dates: start: 20130301, end: 201303
  3. ONDANSETRON [Concomitant]
  4. LEVOTHROID [Concomitant]

REACTIONS (7)
  - Blood glucose increased [Not Recovered/Not Resolved]
  - Platelet count decreased [Unknown]
  - Weight increased [Unknown]
  - Headache [Unknown]
  - Hair colour changes [Unknown]
  - Thyroid function test abnormal [Unknown]
  - Vision blurred [Unknown]
